FAERS Safety Report 17195111 (Version 1)
Quarter: 2019Q4

REPORT INFORMATION
  Report Type: Spontaneous
  Country: DE (occurrence: DE)
  Receive Date: 20191224
  Receipt Date: 20191224
  Transmission Date: 20200122
  Serious: Yes (Other)
  Sender: FDA-Public Use
  Company Number: DE-TEVA-2019-DE-1155159

PATIENT
  Age: 63 Year
  Sex: Female

DRUGS (8)
  1. ASS 100 [Suspect]
     Active Substance: ASPIRIN
     Dosage: APPLICATION FOR YEARS:100 MILLIGRAM
     Route: 065
     Dates: end: 20190403
  2. FLUOXETIN [Suspect]
     Active Substance: FLUOXETINE HYDROCHLORIDE
     Dosage: 20 MILLIGRAM
     Dates: start: 20190411, end: 20190415
  3. FLUOXETIN [Suspect]
     Active Substance: FLUOXETINE HYDROCHLORIDE
     Dates: start: 2019, end: 20190401
  4. FLUOXETIN [Suspect]
     Active Substance: FLUOXETINE HYDROCHLORIDE
     Dates: start: 20190402, end: 20190410
  5. PANTOPRAZOL [Concomitant]
     Active Substance: PANTOPRAZOLE SODIUM
     Dates: start: 20190401
  6. EISENTABLETTEN [Concomitant]
     Dosage: APPLICATION FOR MONTHS
  7. FLUOXETIN [Suspect]
     Active Substance: FLUOXETINE HYDROCHLORIDE
     Dates: start: 20190416, end: 20190418
  8. PROMETHAZINE [Concomitant]
     Active Substance: PROMETHAZINE HYDROCHLORIDE
     Dosage: APPLICATION FOR MONTHS

REACTIONS (2)
  - Haematoma [Recovering/Resolving]
  - Haemorrhagic disorder [Recovering/Resolving]

NARRATIVE: CASE EVENT DATE: 2019
